FAERS Safety Report 19408572 (Version 1)
Quarter: 2021Q2

REPORT INFORMATION
  Report Type: Spontaneous
  Country: ES (occurrence: ES)
  Receive Date: 20210612
  Receipt Date: 20210612
  Transmission Date: 20210717
  Serious: Yes (Disabling, Other)
  Sender: FDA-Public Use
  Company Number: ES-TEVA-2019-ES-1006037

PATIENT
  Age: 48 Year
  Sex: Female
  Weight: 55 kg

DRUGS (1)
  1. CIPROFLOXACINO (2049A) [Suspect]
     Active Substance: CIPROFLOXACIN
     Indication: URINARY TRACT INFECTION
     Dosage: EVERY TWELVE HOURS
     Route: 048
     Dates: start: 2007

REACTIONS (6)
  - Anxiety [Not Recovered/Not Resolved]
  - Rotator cuff syndrome [Recovering/Resolving]
  - Headache [Not Recovered/Not Resolved]
  - Periarthritis [Not Recovered/Not Resolved]
  - Migraine [Not Recovered/Not Resolved]
  - Myalgia [Not Recovered/Not Resolved]

NARRATIVE: CASE EVENT DATE: 20080101
